FAERS Safety Report 24303810 (Version 1)
Quarter: 2024Q3

REPORT INFORMATION
  Report Type: Report from Study
  Country: US (occurrence: US)
  Receive Date: 20240910
  Receipt Date: 20240910
  Transmission Date: 20241017
  Serious: Yes (Hospitalization)
  Sender: EISAI
  Company Number: US-Eisai-EC-2024-173874

PATIENT
  Age: 68 Year
  Sex: Male
  Weight: 59.9 kg

DRUGS (9)
  1. LENVATINIB [Suspect]
     Active Substance: LENVATINIB
     Indication: Metastatic malignant melanoma
     Route: 048
     Dates: start: 20240829, end: 20240903
  2. PEMBROLIZUMAB [Suspect]
     Active Substance: PEMBROLIZUMAB
     Indication: Metastatic malignant melanoma
     Dates: start: 20240829, end: 20240829
  3. PRAVASTATIN [Concomitant]
     Active Substance: PRAVASTATIN
     Dates: start: 2016
  4. AMLODIPINE [Concomitant]
     Active Substance: AMLODIPINE BESYLATE
     Dates: start: 2018
  5. KEPPRA [Concomitant]
     Active Substance: LEVETIRACETAM
     Dates: start: 20240828
  6. NALDEMEDINE [Concomitant]
     Active Substance: NALDEMEDINE
     Dates: start: 202405
  7. ZOFRAN [Concomitant]
     Active Substance: ONDANSETRON HYDROCHLORIDE
     Dates: start: 2023
  8. OXYCONTIN [Concomitant]
     Active Substance: OXYCODONE HYDROCHLORIDE
     Dates: start: 2023
  9. ROXICODONE [Concomitant]
     Active Substance: OXYCODONE HYDROCHLORIDE
     Dates: start: 2023

REACTIONS (1)
  - Haemorrhage intracranial [Not Recovered/Not Resolved]

NARRATIVE: CASE EVENT DATE: 20240902
